FAERS Safety Report 24920603 (Version 1)
Quarter: 2025Q1

REPORT INFORMATION
  Report Type: Report from Study
  Country: US (occurrence: US)
  Receive Date: 20250204
  Receipt Date: 20250204
  Transmission Date: 20250409
  Serious: No
  Sender: EXELIXIS
  Company Number: US-EXELIXIS-CABO-24074284

PATIENT
  Sex: Female

DRUGS (2)
  1. CABOMETYX [Suspect]
     Active Substance: CABOZANTINIB S-MALATE
     Indication: Renal cancer
     Dosage: 40 MG, QD
     Route: 048
  2. CABOMETYX [Suspect]
     Active Substance: CABOZANTINIB S-MALATE

REACTIONS (6)
  - Tinnitus [Not Recovered/Not Resolved]
  - Blood pressure fluctuation [Unknown]
  - Glossodynia [Unknown]
  - Oral pain [Recovering/Resolving]
  - Fatigue [Not Recovered/Not Resolved]
  - Lichen sclerosus [Unknown]
